FAERS Safety Report 10255639 (Version 2)
Quarter: 2014Q2

REPORT INFORMATION
  Report Type: Spontaneous
  Country: IT (occurrence: IT)
  Receive Date: 20140624
  Receipt Date: 20140627
  Transmission Date: 20141212
  Serious: Yes (Hospitalization)
  Sender: FDA-Public Use
  Company Number: IT-SA-2014SA077948

PATIENT
  Age: 80 Year
  Sex: Female

DRUGS (17)
  1. CLEXANE [Suspect]
     Indication: THROMBOSIS PROPHYLAXIS
     Route: 058
     Dates: start: 20140417, end: 20140418
  2. TIKLID [Suspect]
     Indication: THROMBOCYTOPENIA
     Route: 048
     Dates: start: 20140409, end: 20140429
  3. CALCIPARIN [Suspect]
     Indication: DEEP VEIN THROMBOSIS
     Route: 058
     Dates: start: 20140513, end: 20140605
  4. TAZOCIN [Suspect]
     Indication: PNEUMONIA BACTERIAL
     Route: 030
     Dates: start: 20140408, end: 20140428
  5. INVANZ [Suspect]
     Indication: PNEUMONIA BACTERIAL
     Route: 042
  6. VANCOMYCIN [Suspect]
     Indication: PNEUMONIA BACTERIAL
     Route: 042
  7. CETIRIZINE [Suspect]
     Indication: PRODUCT USED FOR UNKNOWN INDICATION
     Route: 048
  8. CONTRAMAL [Suspect]
     Indication: PRODUCT USED FOR UNKNOWN INDICATION
     Route: 048
     Dates: start: 20140409, end: 20140527
  9. LEVOFLOXACIN [Suspect]
     Indication: PNEUMONIA BACTERIAL
     Route: 042
     Dates: start: 20140409, end: 20140429
  10. ACICLOVIR [Suspect]
     Indication: GENITAL HERPES
     Route: 048
  11. OMEPRAZOLE [Concomitant]
     Route: 048
  12. XAGRID [Concomitant]
     Indication: MYELOPROLIFERATIVE DISORDER
     Dosage: HARD CAPSULE FOR ORAL USE VIAL
     Route: 048
  13. SALMETEROL [Concomitant]
     Indication: ASTHMA
     Dosage: 25 MCG/SUPPLY SUSPENSION PRESURIZED DUE TO INHALATION
     Route: 055
  14. BUDESONIDE [Concomitant]
     Dosage: PRESSURIZED SUSPENSION
     Route: 055
  15. FOLINA [Concomitant]
     Route: 048
  16. TAVOR [Concomitant]
     Indication: INSOMNIA
     Route: 048
  17. FUROSEMIDE [Concomitant]
     Dosage: 20 MG/2 ML SOLUTION FOR INJECTION 5 VIALS OF 2 ML
     Route: 030

REACTIONS (4)
  - Drug reaction with eosinophilia and systemic symptoms [Recovering/Resolving]
  - Generalised oedema [Recovering/Resolving]
  - Skin exfoliation [Recovering/Resolving]
  - Haematidrosis [Recovering/Resolving]
